FAERS Safety Report 14470208 (Version 2)
Quarter: 2019Q1

REPORT INFORMATION
  Report Type: Other
  Country: US (occurrence: US)
  Receive Date: 20180131
  Receipt Date: 20190126
  Transmission Date: 20190417
  Serious: No
  Sender: FDA-Public Use
  Company Number: US-ACORDA-ACO_141644_2017

PATIENT
  Sex: Male

DRUGS (19)
  1. AMANTADINE. [Concomitant]
     Active Substance: AMANTADINE HYDROCHLORIDE
     Dosage: 100 MG, BID
     Route: 065
     Dates: start: 20170830
  2. PRIMIDONE. [Concomitant]
     Active Substance: PRIMIDONE
     Dosage: 50 MG, UNK
     Route: 065
     Dates: start: 20170604, end: 20171203
  3. AMPYRA [Suspect]
     Active Substance: DALFAMPRIDINE
     Dosage: 10 MG, BID
     Route: 065
  4. AMPYRA [Suspect]
     Active Substance: DALFAMPRIDINE
     Dosage: 10 MG, Q 12 HRS
     Route: 065
  5. TYSABRI [Concomitant]
     Active Substance: NATALIZUMAB
     Indication: PRODUCT USED FOR UNKNOWN INDICATION
     Dosage: UNK
     Route: 065
  6. AMPYRA [Suspect]
     Active Substance: DALFAMPRIDINE
     Indication: MULTIPLE SCLEROSIS
     Dosage: 10 MG, BID (Q12H)
     Route: 065
     Dates: start: 20170224
  7. AMPYRA [Suspect]
     Active Substance: DALFAMPRIDINE
     Dosage: 10 MG, BID
     Route: 065
  8. TIZANIDINE. [Suspect]
     Active Substance: TIZANIDINE
     Indication: PRODUCT USED FOR UNKNOWN INDICATION
     Dosage: 2 MG, UNK
     Route: 065
     Dates: start: 20170207, end: 20170612
  9. AMANTADINE. [Concomitant]
     Active Substance: AMANTADINE HYDROCHLORIDE
     Indication: PRODUCT USED FOR UNKNOWN INDICATION
     Dosage: 100 MG, BID
     Route: 065
     Dates: start: 20170224, end: 20170629
  10. PRIMIDONE. [Concomitant]
     Active Substance: PRIMIDONE
     Indication: PRODUCT USED FOR UNKNOWN INDICATION
     Dosage: 50 MG, UNK
     Route: 065
     Dates: start: 20170512, end: 20170711
  11. AMPYRA [Suspect]
     Active Substance: DALFAMPRIDINE
     Dosage: 10 MG, Q 12 HRS
     Route: 065
  12. TIZANIDINE. [Suspect]
     Active Substance: TIZANIDINE
     Dosage: 2 MG, UNK
     Route: 065
     Dates: start: 20170513, end: 20170712
  13. TIZANIDINE. [Suspect]
     Active Substance: TIZANIDINE
     Dosage: 2 MG, UNK
     Route: 065
     Dates: start: 20170604, end: 20171203
  14. TIZANIDINE. [Suspect]
     Active Substance: TIZANIDINE
     Dosage: 2 MG, BID
     Route: 065
     Dates: start: 20170224
  15. TIZANIDINE. [Suspect]
     Active Substance: TIZANIDINE
     Dosage: 2 MG, UNK
     Route: 065
     Dates: start: 20171201, end: 20171231
  16. PRIMIDONE. [Concomitant]
     Active Substance: PRIMIDONE
     Dosage: 50 MG, UNK
     Route: 065
     Dates: start: 20171108, end: 20180203
  17. TIZANIDINE. [Suspect]
     Active Substance: TIZANIDINE
     Dosage: 2 MG, UNK
     Route: 065
     Dates: start: 20170512, end: 20170711
  18. AMPYRA [Suspect]
     Active Substance: DALFAMPRIDINE
     Dosage: 10 MG, BID
     Route: 065
  19. AVONEX [Concomitant]
     Active Substance: INTERFERON BETA-1A
     Indication: PRODUCT USED FOR UNKNOWN INDICATION
     Dosage: 30 ??G, UNK
     Route: 065
     Dates: start: 20170224

REACTIONS (9)
  - Multiple sclerosis [Unknown]
  - Mobility decreased [Unknown]
  - Hypoaesthesia [Unknown]
  - Fall [Unknown]
  - Fatigue [Unknown]
  - Therapy cessation [Unknown]
  - Multiple sclerosis relapse [Unknown]
  - Gait disturbance [Unknown]
  - Product dose omission [Unknown]
